FAERS Safety Report 10784772 (Version 1)
Quarter: 2015Q1

REPORT INFORMATION
  Report Type: Spontaneous
  Country: JP (occurrence: None)
  Receive Date: 20150209
  Receipt Date: 20150209
  Transmission Date: 20150721
  Serious: Yes (Hospitalization)
  Sender: FDA-Public Use
  Company Number: 2015-000175

PATIENT
  Age: 69 Year
  Sex: Female

DRUGS (4)
  1. ALFACALCIDOL (ALFACALCIDOL) [Suspect]
     Active Substance: ALFACALCIDOL
  2. ACTONEL [Suspect]
     Active Substance: RISEDRONATE SODIUM
     Indication: OSTEOPOROSIS
     Dosage: TOOK FIRST DOSE, ORAL
     Route: 048
     Dates: start: 20150120
  3. SIMVASTATIN (SIMVASTATIN) [Concomitant]
     Active Substance: SIMVASTATIN
  4. INFLUENZA VACCINE (INFLUENZA VACCINE) (INFLUENZA VACCINE) [Concomitant]
     Active Substance: INFLUENZA VIRUS VACCINE

REACTIONS (3)
  - Back pain [None]
  - Paraesthesia [None]
  - Dyspnoea exertional [None]

NARRATIVE: CASE EVENT DATE: 201501
